FAERS Safety Report 8294538-7 (Version None)
Quarter: 2012Q2

REPORT INFORMATION
  Report Type: 
  Country: None (occurrence: None)
  Receive Date: 20120418
  Receipt Date: 20120411
  Transmission Date: 20120825
  Serious: Yes (Other)
  Sender: FDA-Public Use
  Company Number: US-ELI_LILLY_AND_COMPANY-US201110002110

PATIENT
  Sex: Female
  Weight: 56.236 kg

DRUGS (7)
  1. FORTEO [Suspect]
     Indication: OSTEOPOROSIS
     Dosage: 20 UG, QD
     Route: 065
     Dates: start: 20020801
  2. FORTEO [Suspect]
     Dosage: 20 UG, QD
     Route: 065
  3. FORTEO [Suspect]
     Dosage: 20 UG, QOD
     Route: 065
     Dates: start: 20120101
  4. PREDNISOLONE [Concomitant]
     Route: 047
  5. DICLOFENAC [Concomitant]
     Route: 047
  6. FORTEO [Suspect]
     Dosage: 20 UG, QOD
     Route: 065
  7. FORTEO [Suspect]
     Dosage: 20 UG, QOD
     Dates: end: 20120410

REACTIONS (15)
  - JOINT SWELLING [None]
  - FEELING ABNORMAL [None]
  - HEADACHE [None]
  - BONE PAIN [None]
  - ARTHRALGIA [None]
  - RETINAL DISORDER [None]
  - RETINAL INJURY [None]
  - VISUAL IMPAIRMENT [None]
  - ABASIA [None]
  - PAIN [None]
  - MUSCLE SPASMS [None]
  - MEDICATION ERROR [None]
  - LOSS OF CONSCIOUSNESS [None]
  - ASTHENIA [None]
  - GAIT DISTURBANCE [None]
